FAERS Safety Report 10011398 (Version 1)
Quarter: 2014Q1

REPORT INFORMATION
  Report Type: Spontaneous
  Country: US (occurrence: None)
  Receive Date: 20140311
  Receipt Date: 20140311
  Transmission Date: 20141002
  Serious: Yes (Death, Other)
  Sender: FDA-Public Use
  Company Number: ADR-2014UNK032

PATIENT
  Age: 23 Year
  Sex: Female
  Weight: 48 kg

DRUGS (4)
  1. MEPROBAMATE [Suspect]
  2. FENTANYL [Concomitant]
  3. DIAZEPAM [Concomitant]
  4. CARISOPRODOL [Concomitant]

REACTIONS (3)
  - Unresponsive to stimuli [None]
  - Toxicity to various agents [None]
  - Resuscitation [None]
